FAERS Safety Report 11664300 (Version 2)
Quarter: 2015Q4

REPORT INFORMATION
  Report Type: Spontaneous
  Country: SE (occurrence: SE)
  Receive Date: 20151027
  Receipt Date: 20151027
  Transmission Date: 20160304
  Serious: Yes (Other)
  Sender: FDA-Public Use
  Company Number: SE-JNJFOC-20151019760

PATIENT
  Age: 60 Year
  Sex: Male

DRUGS (4)
  1. METFORMIN [Concomitant]
     Active Substance: METFORMIN HYDROCHLORIDE
     Route: 065
  2. XARELTO [Suspect]
     Active Substance: RIVAROXABAN
     Indication: PRODUCT USED FOR UNKNOWN INDICATION
     Route: 048
  3. VICTOZA [Concomitant]
     Active Substance: LIRAGLUTIDE
     Route: 065
  4. ISOPHANE INSULIN [Concomitant]
     Active Substance: INSULIN NOS
     Route: 065

REACTIONS (1)
  - Blood glucose increased [Unknown]
